FAERS Safety Report 14347139 (Version 1)
Quarter: 2018Q1

REPORT INFORMATION
  Report Type: Spontaneous
  Country: JP (occurrence: JP)
  Receive Date: 20180103
  Receipt Date: 20180103
  Transmission Date: 20180509
  Serious: Yes (Other)
  Sender: FDA-Public Use
  Company Number: JP-PFIZER INC-2017552090

PATIENT
  Age: 53 Year
  Sex: Male

DRUGS (2)
  1. ANAEMETRO 500MG [Suspect]
     Active Substance: METRONIDAZOLE
     Dosage: UNK
     Dates: start: 201610, end: 201611
  2. PRODIF 400 [Suspect]
     Active Substance: FOSFLUCONAZOLE
     Dosage: UNK
     Dates: start: 201610, end: 201611

REACTIONS (3)
  - Agranulocytosis [Unknown]
  - Ventricular tachycardia [Unknown]
  - Electrocardiogram QT prolonged [Unknown]
